FAERS Safety Report 9679215 (Version 1)
Quarter: 2013Q4

REPORT INFORMATION
  Report Type: Spontaneous
  Country: US (occurrence: US)
  Receive Date: 20131108
  Receipt Date: 20131108
  Transmission Date: 20140711
  Serious: Yes (Hospitalization)
  Sender: FDA-Public Use
  Company Number: US-TAKEDA-2013TUS002074

PATIENT
  Sex: 0

DRUGS (1)
  1. ACTOS [Suspect]
     Dosage: UNK; YRS

REACTIONS (2)
  - Angina pectoris [Recovered/Resolved]
  - Hyperhidrosis [Recovered/Resolved]
